FAERS Safety Report 24970055 (Version 1)
Quarter: 2025Q1

REPORT INFORMATION
  Report Type: Spontaneous
  Country: US (occurrence: None)
  Receive Date: 20250213
  Receipt Date: 20250213
  Transmission Date: 20250408
  Serious: Yes (Other)
  Sender: FDA-CTU
  Company Number: None

PATIENT
  Age: 5 Year
  Sex: Male
  Weight: 18 kg

DRUGS (1)
  1. MIRALAX [Suspect]
     Active Substance: POLYETHYLENE GLYCOL 3350
     Indication: Constipation
     Route: 048

REACTIONS (11)
  - Mood swings [None]
  - Psychomotor skills impaired [None]
  - Nervousness [None]
  - Homicidal ideation [None]
  - Physical assault [None]
  - Tic [None]
  - Cough [None]
  - Tremor [None]
  - Agitation [None]
  - Energy increased [None]
  - Cognitive disorder [None]

NARRATIVE: CASE EVENT DATE: 20250201
